FAERS Safety Report 7862755 (Version 7)
Quarter: 2013Q1

REPORT INFORMATION
  Report Type: Spontaneous
  Country: US (occurrence: None)
  Receive Date: 20110224
  Receipt Date: 20121031
  Transmission Date: 20140127
  Serious: Yes (Hospitalization, Other)
  Sender: FDA-Public Use
  Company Number: 2011016567

PATIENT
  Age: 67 Year
  Sex: Male
  Weight: 94 kg

DRUGS (66)
  1. DALTEPARIN SODIUM [Suspect]
     Indication: DEEP VEIN THROMBOSIS
     Dosage: 15000 IU, DAILY, SUBCUTANEOUS
     Route: 058
     Dates: start: 20101230, end: 20110119
  2. METOPROLOL [Concomitant]
  3. DUTASTERIDE [Concomitant]
  4. ALPRAZOLAM [Concomitant]
  5. PERCOCET [Concomitant]
  6. CYCLOBENZAPRINE [Concomitant]
  7. GABAPENTIN [Concomitant]
  8. LIDODERM [Concomitant]
  9. LANSOPRAZOLE [Concomitant]
  10. ONDANSETRON [Concomitant]
  11. PROCHLORPERAZINE [Concomitant]
  12. VENLAFAXINE [Concomitant]
  13. SENOKOT [Concomitant]
  14. POLYETHYLENE GLYCOLS [Concomitant]
  15. MONTELUKAST SODIUM [Concomitant]
  16. LORATADINE [Concomitant]
  17. CICLOPIROX [Concomitant]
  18. ALOXI [Concomitant]
  19. LORAZEPAM [Concomitant]
  20. DEXAMETHASONE SODIUM PHOSPHATE [Concomitant]
  21. MANNITOL [Concomitant]
  22. EMEND [Concomitant]
  23. TAMSULOSIN HYDROCHLORIDE [Concomitant]
  24. CARBOPLATIN [Concomitant]
  25. GEMCITABINE [Concomitant]
  26. LISINOPRIL [Concomitant]
  27. AMLODIPINE [Concomitant]
  28. METFORMIN HYDROCHLORIDE [Concomitant]
  29. FENTANYL [Concomitant]
  30. NAPROXEN [Concomitant]
  31. OMEPRAZOLE [Concomitant]
  32. PHENAZOPYRIDINE HYDROCHLORIDE [Concomitant]
  33. PAROXETINE [Concomitant]
  34. MAGNESIUM OXIDE [Concomitant]
  35. POTASSIUM CHLORIDE [Concomitant]
  36. FEXOFENADINE [Concomitant]
  37. ANZEMET [Concomitant]
  38. NEUPOGEN [Concomitant]
  39. RED BLOOD CELLS, CONCENTRATED [Concomitant]
  40. TAMSULOSIN (TAMSULOSIN) [Concomitant]
  41. CELECOXIB (CELECOXIB) [Concomitant]
  42. DIPHENHYDRAMINE [Concomitant]
  43. ALLOPURINOL [Concomitant]
  44. LOPERAMIDE [Concomitant]
  45. OXYCODONE [Concomitant]
  46. PIPERACILLIN/TAZOBACTAM [Concomitant]
  47. SODIUM BICARBONATE [Concomitant]
  48. SODIUM CHLORIDE [Concomitant]
  49. SODIUM POLYSTYRENE SULFONATE [Concomitant]
  50. KAOPECTATE (KAOLIN, PECTIN) [Concomitant]
  51. ACETAMINOPHEN (PARACETAMOL) [Concomitant]
  52. ZOFRAN (ONDANSETRON HYDROCHLORIDE) [Concomitant]
  53. FUROSEMIDE (FUROSEMIDE) [Concomitant]
  54. ACETAMINOPHEN/BUTALBITAL (BUTALBITAL, PARACETAMOL) [Concomitant]
  55. MYLANTA (ALUMINUM HYDROXIDE GEL, DRIED, MAGNESIUM HYDROXIDE, SIMETICONE) [Concomitant]
  56. ALBUTEROL (SALBUTAMOL) [Concomitant]
  57. GUAIFENESIN (GUAIFENESIN) [Concomitant]
  58. HEPARIN (HEPARIN) [Concomitant]
  59. LEVOFLOXACIN [Concomitant]
  60. LEVOFLOXACIN [Concomitant]
  61. LINEZOLID [Concomitant]
  62. MONTELUKAST [Concomitant]
  63. MORPHINE [Concomitant]
  64. MULTIVITAMINS (ASCORBIC ACID, ERGOCALCIFEROL, FOLIC ACID, NICOTINAMIDE, PANTHENOL, RETINOL, RIBOFLAVIN, THIAMINE HYDROCHLORIDE) [Concomitant]
  65. SENOKOT (SENNA FRUIT) [Concomitant]
  66. PLATELET (DIPYRIDAMOLE) [Concomitant]

REACTIONS (17)
  - Anaemia [None]
  - Renal failure acute [None]
  - Flank pain [None]
  - Cellulitis [None]
  - Lymphatic obstruction [None]
  - Thrombocytopenia [None]
  - Hypokalaemia [None]
  - Hypophosphataemia [None]
  - Hypomagnesaemia [None]
  - Lymphadenopathy [None]
  - Hydronephrosis [None]
  - Hiatus hernia [None]
  - Pleural effusion [None]
  - Dehydration [None]
  - Sepsis [None]
  - Pain [None]
  - Urinary tract infection staphylococcal [None]
